FAERS Safety Report 6844270-9 (Version None)
Quarter: 2010Q2

REPORT INFORMATION
  Report Type: 
  Country: None (occurrence: None)
  Receive Date: 20100629
  Receipt Date: 20100305
  Transmission Date: 20101027
  Serious: No
  Sender: FDA-Public Use
  Company Number: US-WYE-H13995310

PATIENT
  Sex: Male

DRUGS (4)
  1. PRISTIQ [Suspect]
     Indication: DEPRESSION
     Dosage: 50 MG 1X PER 2 DAY, ORAL
     Route: 048
     Dates: start: 20090901, end: 20100223
  2. PRISTIQ [Suspect]
     Indication: DEPRESSION
     Dosage: 50 MG 1X PER 2 DAY, ORAL
     Route: 048
     Dates: start: 20100224
  3. WELLBUTRIN [Concomitant]
  4. RITALIN [Concomitant]

REACTIONS (4)
  - DIZZINESS [None]
  - DRUG INEFFECTIVE [None]
  - DRUG WITHDRAWAL SYNDROME [None]
  - HEADACHE [None]
